FAERS Safety Report 7491673-8 (Version None)
Quarter: 2011Q2

REPORT INFORMATION
  Report Type: 
  Country: None (occurrence: None)
  Receive Date: 20110519
  Receipt Date: 20110504
  Transmission Date: 20111010
  Serious: Yes (Other)
  Sender: FDA-Public Use
  Company Number: US-BAYER-2011-039184

PATIENT
  Age: 85 Year
  Sex: Male

DRUGS (6)
  1. ACETYLSALICYLIC ACID SRT [Interacting]
     Dosage: 81 MG, QD
     Route: 048
     Dates: start: 20110201, end: 20110401
  2. COUMADIN [Interacting]
  3. PROPRANOLOL [Concomitant]
  4. ASPIRIN [Suspect]
     Dosage: 325 MG, QD
     Route: 048
     Dates: start: 20101220
  5. PLAVIX [Interacting]
     Indication: CEREBROVASCULAR ACCIDENT PROPHYLAXIS
     Dosage: 75 MG, QD
     Dates: start: 20101220
  6. MONOPRIL [Concomitant]

REACTIONS (2)
  - EYE HAEMORRHAGE [None]
  - CONTUSION [None]
